FAERS Safety Report 7136886-X (Version None)
Quarter: 2010Q4

REPORT INFORMATION
  Report Type: 
  Country: None (occurrence: None)
  Receive Date: 20101206
  Receipt Date: 20090630
  Transmission Date: 20110411
  Serious: Yes (Death)
  Sender: FDA-Public Use
  Company Number: US-ACTELION-A-NJ2008-22067

PATIENT

DRUGS (3)
  1. TRACLEER [Suspect]
     Indication: PULMONARY ARTERIAL HYPERTENSION
     Dosage: 125 MG, BID
     Route: 048
  2. TRACLEER [Suspect]
     Route: 048
     Dates: start: 20080501
  3. TRACLEER [Suspect]
     Dosage: 125 MG QAM + 62.5 MG QPM
     Route: 048

REACTIONS (2)
  - DEATH [None]
  - INSOMNIA [None]
